APPROVED DRUG PRODUCT: TESTOSTERONE CYPIONATE
Active Ingredient: TESTOSTERONE CYPIONATE
Strength: 200MG/ML
Dosage Form/Route: INJECTABLE;INJECTION
Application: A091244 | Product #001 | TE Code: AO
Applicant: HIKMA FARMACEUTICA (PORTUGAL) SA
Approved: May 1, 2012 | RLD: No | RS: No | Type: RX